FAERS Safety Report 23482241 (Version 1)
Quarter: 2024Q1

REPORT INFORMATION
  Report Type: Spontaneous
  Country: GR (occurrence: None)
  Receive Date: 20240205
  Receipt Date: 20240205
  Transmission Date: 20240410
  Serious: Yes (Life-Threatening, Hospitalization, Other)
  Sender: FDA-Public Use
  Company Number: 2024A027129

PATIENT
  Age: 27028 Day
  Sex: Male

DRUGS (1)
  1. DAPAGLIFLOZIN [Suspect]
     Active Substance: DAPAGLIFLOZIN
     Indication: Renal impairment
     Route: 048

REACTIONS (4)
  - Metabolic acidosis [Unknown]
  - Malaise [Unknown]
  - Apathy [Unknown]
  - Nausea [Unknown]
